FAERS Safety Report 10399530 (Version 1)
Quarter: 2014Q3

REPORT INFORMATION
  Report Type: Spontaneous
  Country: US (occurrence: None)
  Receive Date: 20140818
  Receipt Date: 20140818
  Transmission Date: 20150326
  Serious: Yes (Other)
  Sender: FDA-Public Use
  Company Number: None

PATIENT
  Age: 52 Year
  Sex: Male
  Weight: 69.4 kg

DRUGS (1)
  1. BACLOFEN. [Suspect]
     Active Substance: BACLOFEN
     Indication: TORTICOLLIS
     Dosage: 1 PILL ONCE DAILY TAKEN BY MOUTH
     Route: 048

REACTIONS (7)
  - Torticollis [None]
  - Muscular weakness [None]
  - Dyspnoea [None]
  - Fatigue [None]
  - Vision blurred [None]
  - Condition aggravated [None]
  - Feeling abnormal [None]

NARRATIVE: CASE EVENT DATE: 20140511
